FAERS Safety Report 11052744 (Version 1)
Quarter: 2015Q2

REPORT INFORMATION
  Report Type: Spontaneous
  Country: US (occurrence: None)
  Receive Date: 20150420
  Receipt Date: 20150420
  Transmission Date: 20150821
  Serious: Yes (Hospitalization)
  Sender: FDA-Public Use
  Company Number: None

PATIENT
  Age: 66 Year
  Sex: Female

DRUGS (1)
  1. PACLITAXEL. [Suspect]
     Active Substance: PACLITAXEL
     Indication: BREAST CANCER
     Dosage: 117 MG, WEEKLY, INTRAVENOUS
     Route: 042
     Dates: start: 20150316, end: 20150316

REACTIONS (6)
  - Back pain [None]
  - Loss of consciousness [None]
  - Dyspnoea [None]
  - Pharyngeal oedema [None]
  - Anaphylactoid reaction [None]
  - Hypotension [None]

NARRATIVE: CASE EVENT DATE: 20150416
